FAERS Safety Report 9783980 (Version 2)
Quarter: 2014Q1

REPORT INFORMATION
  Report Type: Spontaneous
  Country: FR (occurrence: FR)
  Receive Date: 20131226
  Receipt Date: 20140205
  Transmission Date: 20141002
  Serious: Yes (Hospitalization, Other)
  Sender: FDA-Public Use
  Company Number: FR-PFIZER INC-2013363242

PATIENT
  Age: 78 Year
  Sex: Female

DRUGS (6)
  1. TAHOR [Suspect]
     Indication: HYPERTENSION
     Dosage: 10 MG, 1X/DAY
     Route: 048
     Dates: end: 20131127
  2. AUGMENTIN [Suspect]
     Indication: PROPHYLAXIS
     Dosage: 1 G, 3X/DAY
     Route: 048
     Dates: start: 20131120, end: 20131123
  3. LERCAN [Suspect]
     Indication: HYPERTENSION
     Dosage: 10 MG, 1X/DAY
     Route: 048
     Dates: end: 20131127
  4. LAMICTAL [Concomitant]
     Indication: EPILEPSY
     Dosage: 50 MG, 2X/DAY
     Route: 048
     Dates: end: 20131127
  5. LAMICTAL [Concomitant]
     Dosage: UNK
     Dates: start: 20131206
  6. LEVOTHYROX [Concomitant]
     Indication: HYPOTHYROIDISM
     Dosage: UNK

REACTIONS (15)
  - Drug reaction with eosinophilia and systemic symptoms [Recovered/Resolved]
  - Rash [Recovered/Resolved]
  - Eosinophilia [Recovered/Resolved]
  - Renal failure acute [Recovered/Resolved]
  - Pyrexia [Recovered/Resolved]
  - Fall [Unknown]
  - Meningeal disorder [Unknown]
  - Face injury [Unknown]
  - Multiple fractures [Unknown]
  - Fall [Unknown]
  - Rhabdomyolysis [Unknown]
  - Acute pulmonary oedema [Unknown]
  - Nervous system disorder [Recovered/Resolved]
  - Diverticulitis intestinal haemorrhagic [Unknown]
  - Bacterial test positive [Unknown]
